FAERS Safety Report 7163019-6 (Version None)
Quarter: 2010Q4

REPORT INFORMATION
  Report Type: 
  Country: None (occurrence: None)
  Receive Date: 20101215
  Receipt Date: 20100218
  Transmission Date: 20110411
  Serious: Yes (Death, Hospitalization)
  Sender: FDA-Public Use
  Company Number: ES-PFIZER INC-2009204721

PATIENT
  Age: 81 Year
  Sex: Male

DRUGS (4)
  1. MORPHINE SULFATE [Interacting]
     Indication: BACK PAIN
     Dosage: 60 MG, DAILY
     Route: 048
     Dates: start: 20080901, end: 20081101
  2. LYRICA [Suspect]
     Indication: BACK PAIN
     Dosage: 25 MG, UNK
     Route: 048
     Dates: start: 20080901, end: 20081101
  3. DURAGESIC-100 [Interacting]
     Indication: BACK PAIN
     Dosage: 75 UG, UNK
     Route: 062
     Dates: start: 20080930, end: 20081101
  4. DURAGESIC-100 [Interacting]
     Dosage: 50 UG, UNK
     Route: 065
     Dates: end: 20080930

REACTIONS (4)
  - CONFUSIONAL STATE [None]
  - DRUG INTERACTION [None]
  - OVERDOSE [None]
  - RESPIRATORY FAILURE [None]
